FAERS Safety Report 12969464 (Version 1)
Quarter: 2016Q4

REPORT INFORMATION
  Report Type: Spontaneous
  Country: JP (occurrence: JP)
  Receive Date: 20161123
  Receipt Date: 20161123
  Transmission Date: 20170207
  Serious: Yes (Hospitalization)
  Sender: FDA-Public Use
  Company Number: JP-SA-2016SA213024

PATIENT
  Age: 61 Year
  Sex: Male
  Weight: 47.6 kg

DRUGS (1)
  1. FABRAZYME [Suspect]
     Active Substance: AGALSIDASE BETA
     Indication: FABRY^S DISEASE
     Dosage: FABRAZYME AT 50 MG
     Route: 041
     Dates: start: 20040512

REACTIONS (2)
  - Altered state of consciousness [Not Recovered/Not Resolved]
  - Embolic stroke [Not Recovered/Not Resolved]

NARRATIVE: CASE EVENT DATE: 20161113
